FAERS Safety Report 6129476-9 (Version None)
Quarter: 2009Q1

REPORT INFORMATION
  Report Type: 
  Country: None (occurrence: None)
  Receive Date: 20090324
  Receipt Date: 20090324
  Transmission Date: 20090719
  Serious: Yes (Other)
  Sender: FDA-Public Use
  Company Number: US-PFIZER INC-2007009791

PATIENT
  Sex: Female
  Weight: 65.3 kg

DRUGS (3)
  1. LYRICA [Suspect]
     Indication: PAIN
     Dosage: 6 EVERY 1 DAYS
     Dates: start: 20061201
  2. NEURONTIN [Suspect]
  3. CYMBALTA [Concomitant]

REACTIONS (8)
  - ANGER [None]
  - ANXIETY [None]
  - DISTURBANCE IN ATTENTION [None]
  - FEELING ABNORMAL [None]
  - INSOMNIA [None]
  - RESTLESSNESS [None]
  - TREMOR [None]
  - WEIGHT INCREASED [None]
